FAERS Safety Report 4434004-X (Version None)
Quarter: 2004Q3

REPORT INFORMATION
  Report Type: 
  Country: None (occurrence: None)
  Receive Date: 20040825
  Receipt Date: 20040811
  Transmission Date: 20050211
  Serious: Yes (Other)
  Sender: FDA-Public Use
  Company Number: P2004000009

PATIENT
  Age: 87 Year
  Sex: Male

DRUGS (4)
  1. PLENAXIS [Suspect]
     Indication: PROSTATE CANCER
     Dosage: 100 MG, DAY 1, 15, 29, Q4 WEEKS, INTRAMUSCULAR
     Route: 030
     Dates: start: 20040802
  2. TOPROL-XL [Concomitant]
  3. NORVASC /GRC/ (AMLODIPINE) [Concomitant]
  4. ACETYLSALICYLIC ACID SRT [Concomitant]

REACTIONS (10)
  - DIZZINESS [None]
  - DYSPNOEA [None]
  - FEELING HOT [None]
  - FLUSHING [None]
  - HEADACHE [None]
  - HYPERSENSITIVITY [None]
  - OEDEMA PERIPHERAL [None]
  - PARAESTHESIA [None]
  - SWELLING FACE [None]
  - VISUAL DISTURBANCE [None]
